FAERS Safety Report 5051202-5 (Version None)
Quarter: 2006Q3

REPORT INFORMATION
  Report Type: 
  Country: None (occurrence: None)
  Receive Date: 20060714
  Receipt Date: 20060608
  Transmission Date: 20061208
  Serious: Yes (Hospitalization)
  Sender: FDA-Public Use
  Company Number: BE-BRISTOL-MYERS SQUIBB COMPANY-13405089

PATIENT
  Age: 65 Year
  Sex: Male
  Weight: 98 kg

DRUGS (9)
  1. CISPLATIN [Suspect]
     Indication: SMALL CELL LUNG CANCER STAGE UNSPECIFIED
     Route: 042
     Dates: start: 20060508, end: 20060508
  2. IRINOTECAN HCL [Suspect]
     Indication: SMALL CELL LUNG CANCER STAGE UNSPECIFIED
     Route: 042
     Dates: start: 20060508, end: 20060516
  3. ZURCAL [Concomitant]
     Route: 048
  4. HALDOL [Concomitant]
     Route: 048
  5. ZYPREXA [Concomitant]
     Route: 048
  6. ENTUMINE [Concomitant]
     Route: 048
  7. DURAGESIC-100 [Concomitant]
     Route: 048
  8. MORPHINE [Concomitant]
     Route: 048
  9. COMBIVENT [Concomitant]
     Route: 048

REACTIONS (3)
  - DEHYDRATION [None]
  - DIARRHOEA [None]
  - RENAL FAILURE [None]
